FAERS Safety Report 6615477-0 (Version None)
Quarter: 2010Q1

REPORT INFORMATION
  Report Type: 
  Country: None (occurrence: None)
  Receive Date: 20100305
  Receipt Date: 20100223
  Transmission Date: 20100710
  Serious: Yes (Hospitalization)
  Sender: FDA-Public Use
  Company Number: JP-ROCHE-674394

PATIENT
  Sex: Male

DRUGS (2)
  1. TAMIFLU [Suspect]
     Indication: INFLUENZA
     Route: 048
     Dates: start: 20091206, end: 20091206
  2. CALONAL [Concomitant]
     Dosage: FORM:ORAL FORMULATION.
     Route: 048

REACTIONS (3)
  - BLOOD PRESSURE DECREASED [None]
  - SHOCK [None]
  - URTICARIA [None]
